FAERS Safety Report 4933040-4 (Version None)
Quarter: 2006Q1

REPORT INFORMATION
  Report Type: 
  Country: None (occurrence: None)
  Receive Date: 20060301
  Receipt Date: 20060222
  Transmission Date: 20060701
  Serious: Yes (Other)
  Sender: FDA-Public Use
  Company Number: S06-USA-00599-01

PATIENT
  Age: 63 Year
  Sex: Male

DRUGS (6)
  1. CELEXA [Suspect]
     Indication: ANGER
     Dosage: 20 MG QD PO
     Route: 048
     Dates: start: 20030201
  2. CELEXA [Suspect]
     Indication: ANGER
     Dosage: 40 MG QD PO
     Route: 048
     Dates: end: 20050901
  3. CELEXA [Suspect]
     Indication: ANGER
     Dosage: 60 MG QD PO
     Route: 048
     Dates: start: 20050901, end: 20050101
  4. CELEXA [Suspect]
     Indication: ANGER
     Dosage: 40 MG QD PO
     Route: 048
     Dates: start: 20050101, end: 20051201
  5. CELEXA [Suspect]
     Indication: ANGER
     Dosage: 40 MG QD PO
     Route: 048
  6. HYDROCHLOROTHIAZIDE [Concomitant]

REACTIONS (3)
  - AMNESIA [None]
  - HYPERPARATHYROIDISM PRIMARY [None]
  - NEUROLOGICAL EXAMINATION ABNORMAL [None]
